FAERS Safety Report 5614649-1 (Version None)
Quarter: 2008Q1

REPORT INFORMATION
  Report Type: 
  Country: None (occurrence: None)
  Receive Date: 20080131
  Receipt Date: 20080116
  Transmission Date: 20080703
  Serious: No
  Sender: FDA-Public Use
  Company Number: 08H-163-0313780-00

PATIENT

DRUGS (3)
  1. LIDOCAINE HCL [Suspect]
     Indication: ANAESTHESIA
     Dates: start: 20080111, end: 20080111
  2. STEROIDS (CORTICOSTEROIDS) [Concomitant]
  3. ANTIBIOTIC (ANTIOBIOTICS) [Concomitant]

REACTIONS (1)
  - TOXIC ANTERIOR SEGMENT SYNDROME [None]
